FAERS Safety Report 9431582 (Version 2)
Quarter: 2014Q1

REPORT INFORMATION
  Report Type: Report from Study
  Country: ZA (occurrence: ZA)
  Receive Date: 20130731
  Receipt Date: 20140128
  Transmission Date: 20141002
  Serious: Yes (Death, Hospitalization)
  Sender: FDA-Public Use
  Company Number: ZA-ROCHE-1254942

PATIENT
  Age: 74 Year
  Sex: Male

DRUGS (8)
  1. MIRCERA [Suspect]
     Indication: NEPHROGENIC ANAEMIA
     Route: 058
     Dates: start: 20130209
  2. MIRCERA [Suspect]
     Route: 058
     Dates: start: 201307
  3. RECORMON [Concomitant]
     Indication: NEPHROGENIC ANAEMIA
     Route: 058
     Dates: start: 20080131
  4. RECORMON [Concomitant]
     Route: 058
     Dates: start: 200803
  5. RECORMON [Concomitant]
     Route: 058
     Dates: start: 200805
  6. RECORMON [Concomitant]
     Route: 058
     Dates: start: 200906
  7. RECORMON [Concomitant]
     Route: 058
     Dates: start: 201105
  8. RECORMON [Concomitant]
     Route: 058
     Dates: start: 201201

REACTIONS (2)
  - Death [Fatal]
  - Haematochezia [Unknown]
